FAERS Safety Report 6795996-7 (Version None)
Quarter: 2010Q2

REPORT INFORMATION
  Report Type: 
  Country: None (occurrence: None)
  Receive Date: 20100625
  Receipt Date: 20100615
  Transmission Date: 20101027
  Serious: Yes (Other)
  Sender: FDA-Public Use
  Company Number: PHHY2010NL33025

PATIENT
  Sex: Male

DRUGS (13)
  1. ZOMETA [Suspect]
     Dosage: 4 MG, UNK
     Route: 042
     Dates: start: 20080902
  2. ZOMETA [Suspect]
     Dosage: 4 MG, UNK
     Route: 042
     Dates: start: 20081013
  3. ZOMETA [Suspect]
     Dosage: 4 MG, UNK
     Route: 042
     Dates: start: 20081125
  4. ZOMETA [Suspect]
     Dosage: 4 MG, UNK
     Route: 042
     Dates: start: 20090107
  5. ZOMETA [Suspect]
     Dosage: 4 MG, UNK
     Route: 042
     Dates: start: 20090211
  6. ZOMETA [Suspect]
     Dosage: 4 MG, UNK
     Route: 042
     Dates: start: 20090324
  7. ZOMETA [Suspect]
     Dosage: 4 MG, UNK
     Route: 042
     Dates: start: 20090623
  8. ZOMETA [Suspect]
     Dosage: 4 MG, UNK
     Route: 042
     Dates: start: 20090922
  9. ZOMETA [Suspect]
     Dosage: 4 MG, UNK
     Route: 042
     Dates: start: 20091217
  10. ZOMETA [Suspect]
     Dosage: 4 MG, UNK
     Route: 042
     Dates: start: 20100125
  11. ZOMETA [Suspect]
     Dosage: 4 MG, UNK
     Route: 042
     Dates: start: 20100310
  12. ZOMETA [Suspect]
     Dosage: 4 MG, UNK
     Route: 042
     Dates: start: 20100422
  13. ZOMETA [Suspect]
     Dosage: 4 MG, UNK
     Route: 042
     Dates: start: 20100521

REACTIONS (6)
  - ASTHENIA [None]
  - BEDRIDDEN [None]
  - DYSSTASIA [None]
  - NEOPLASM PROGRESSION [None]
  - NEURALGIA [None]
  - PAIN IN EXTREMITY [None]
